FAERS Safety Report 7576965-6 (Version None)
Quarter: 2011Q2

REPORT INFORMATION
  Report Type: 
  Country: None (occurrence: None)
  Receive Date: 20110628
  Receipt Date: 20110127
  Transmission Date: 20111010
  Serious: Yes (Other)
  Sender: FDA-Public Use
  Company Number: US-BAYER-201036671NA

PATIENT
  Age: 25 Year
  Sex: Female
  Weight: 58.957 kg

DRUGS (4)
  1. YASMIN [Suspect]
     Indication: CONTRACEPTION
     Dosage: UNK
     Dates: start: 20000101, end: 20060101
  2. MIDOL IB [Concomitant]
     Indication: PAIN
     Dosage: UNK UNK, PRN
  3. AMOXICILLIN [Concomitant]
     Indication: PHARYNGITIS STREPTOCOCCAL
     Dosage: 500 MG, TID
     Route: 048
     Dates: start: 20060324
  4. GLYCILAX [Concomitant]
     Indication: CONSTIPATION
     Dosage: UNK
     Dates: start: 20060128

REACTIONS (3)
  - PAIN [None]
  - CHOLECYSTITIS CHRONIC [None]
  - CHOLECYSTECTOMY [None]
